FAERS Safety Report 6007509-8 (Version None)
Quarter: 2008Q4

REPORT INFORMATION
  Report Type: 
  Country: None (occurrence: None)
  Receive Date: 20081217
  Receipt Date: 20080430
  Transmission Date: 20090506
  Serious: Yes (Other)
  Sender: FDA-Public Use
  Company Number: US-ASTRAZENECA-2008UW08924

PATIENT

DRUGS (1)
  1. CRESTOR [Suspect]

REACTIONS (1)
  - PANCREATITIS [None]
